FAERS Safety Report 11616382 (Version 2)
Quarter: 2015Q4

REPORT INFORMATION
  Report Type: Report from Study
  Country: CH (occurrence: CH)
  Receive Date: 20151009
  Receipt Date: 20151013
  Transmission Date: 20160304
  Serious: Yes (Other)
  Sender: FDA-Public Use
  Company Number: CH-ACTELION-A-CH2013-88376

PATIENT
  Age: 33 Year
  Sex: Male
  Weight: 55.3 kg

DRUGS (5)
  1. ZAVESCA [Suspect]
     Active Substance: MIGLUSTAT
     Indication: NIEMANN-PICK DISEASE
     Dosage: 400 MG
     Route: 048
     Dates: start: 20111001
  2. SERTRALINE [Concomitant]
     Active Substance: SERTRALINE HYDROCHLORIDE
  3. LIORESAL [Concomitant]
     Active Substance: BACLOFEN
  4. LOSARTAN. [Concomitant]
     Active Substance: LOSARTAN
  5. ZAVESCA [Suspect]
     Active Substance: MIGLUSTAT
     Dosage: 100 MG, TID
     Route: 048
     Dates: end: 20140420

REACTIONS (4)
  - Diarrhoea [Recovered/Resolved]
  - Gastrointestinal disorder [Unknown]
  - Weight decreased [Unknown]
  - X-ray gastrointestinal tract abnormal [Unknown]

NARRATIVE: CASE EVENT DATE: 201210
